FAERS Safety Report 8195834-4 (Version None)
Quarter: 2012Q1

REPORT INFORMATION
  Report Type: 
  Country: None (occurrence: None)
  Receive Date: 20120308
  Receipt Date: 20120303
  Transmission Date: 20120608
  Serious: Yes (Hospitalization)
  Sender: FDA-Public Use
  Company Number: FR-ABBOTT-12P-056-0910709-00

PATIENT
  Sex: Male

DRUGS (5)
  1. INDAPAMIDE [Suspect]
     Indication: PRODUCT USED FOR UNKNOWN INDICATION
     Route: 048
     Dates: end: 20110520
  2. PIAS [Concomitant]
     Indication: PRODUCT USED FOR UNKNOWN INDICATION
  3. DEPAKENE [Suspect]
     Indication: EPILEPSY
     Route: 048
  4. SIMVASTATIN [Concomitant]
     Indication: PRODUCT USED FOR UNKNOWN INDICATION
  5. LERCANIDIPINE [Suspect]
     Indication: HYPERTENSION
     Route: 048

REACTIONS (2)
  - HYPONATRAEMIA [None]
  - HYPERCALCAEMIA [None]
